FAERS Safety Report 5573520-4 (Version None)
Quarter: 2007Q4

REPORT INFORMATION
  Report Type: 
  Country: None (occurrence: None)
  Receive Date: 20071220
  Receipt Date: 20071220
  Transmission Date: 20080405
  Serious: Yes (Death)
  Sender: FDA-Public Use
  Company Number: None

PATIENT
  Age: 61 Year
  Sex: Female

DRUGS (1)
  1. XIGRIS [Suspect]
     Indication: SEPSIS
     Dosage: IV DRIP
     Route: 041
     Dates: start: 20071108, end: 20071112

REACTIONS (9)
  - CEREBRAL HAEMORRHAGE [None]
  - COMA [None]
  - HYPOXIA [None]
  - NO THERAPEUTIC RESPONSE [None]
  - RESPIRATORY DISTRESS [None]
  - SEPTIC SHOCK [None]
  - SUBDURAL HAEMATOMA [None]
  - UNRESPONSIVE TO STIMULI [None]
  - URINE OUTPUT INCREASED [None]
